FAERS Safety Report 4893250-1 (Version None)
Quarter: 2006Q1

REPORT INFORMATION
  Report Type: 
  Country: None (occurrence: None)
  Receive Date: 20060124
  Receipt Date: 20060111
  Transmission Date: 20060701
  Serious: Yes (Hospitalization, Other)
  Sender: FDA-Public Use
  Company Number: 2006AL000047

PATIENT
  Age: 34 Year
  Sex: Female
  Weight: 79.8 kg

DRUGS (5)
  1. METFORMIN HYDROCHLORIDE [Suspect]
     Indication: DIABETES MELLITUS NON-INSULIN-DEPENDENT
     Dosage: 1000 MG; BID; PO
     Route: 048
  2. DIAZEPAM [Suspect]
     Dosage: 2.5 MG; BID; PO
     Route: 048
  3. OLANZAPINE [Concomitant]
  4. ARIPIPRAZOLE [Concomitant]
  5. ROSIGLITAZONE [Concomitant]

REACTIONS (3)
  - DIABETIC KETOACIDOSIS [None]
  - HYPOVOLAEMIA [None]
  - METABOLIC ACIDOSIS [None]
